FAERS Safety Report 5889448-6 (Version None)
Quarter: 2008Q3

REPORT INFORMATION
  Report Type: 
  Country: None (occurrence: None)
  Receive Date: 20080908
  Receipt Date: 20080825
  Transmission Date: 20090109
  Serious: No
  Sender: FDA-Public Use
  Company Number: WSDF_00748

PATIENT
  Age: 62 Year
  Sex: Male

DRUGS (5)
  1. WINRHO [Suspect]
     Indication: IDIOPATHIC THROMBOCYTOPENIC PURPURA
     Dosage: 75 UG/KG ONCE
  2. METHYLPREDNISOLONE [Concomitant]
  3. PREDNISONE [Concomitant]
  4. POLYGAM [Concomitant]
  5. DEXAMETHASONE [Concomitant]

REACTIONS (5)
  - HAEMOGLOBIN DECREASED [None]
  - HAEMOGLOBINAEMIA [None]
  - HAEMOGLOBINURIA [None]
  - INTRAVASCULAR HAEMOLYSIS [None]
  - MARROW HYPERPLASIA [None]
